FAERS Safety Report 5145185-7 (Version None)
Quarter: 2006Q4

REPORT INFORMATION
  Report Type: 
  Country: None (occurrence: None)
  Receive Date: 20061107
  Receipt Date: 20061030
  Transmission Date: 20070319
  Serious: Yes (Hospitalization)
  Sender: FDA-Public Use
  Company Number: 2006CG01761

PATIENT
  Age: 89 Year
  Sex: Male

DRUGS (9)
  1. ATACAND [Suspect]
     Indication: HYPERTENSION
     Route: 048
     Dates: end: 20060823
  2. LASIX [Suspect]
     Route: 048
     Dates: end: 20060825
  3. PROZAC [Suspect]
     Route: 048
     Dates: end: 20060823
  4. FLECAINIDE ACETATE [Concomitant]
  5. VASTAREL [Concomitant]
  6. PERMIXON [Concomitant]
  7. PROPOFOL [Concomitant]
  8. NOCTRAN [Concomitant]
  9. TANAKAN [Concomitant]

REACTIONS (1)
  - HYPONATRAEMIA [None]
